FAERS Safety Report 11121405 (Version 2)
Quarter: 2015Q2

REPORT INFORMATION
  Report Type: Spontaneous
  Country: AU (occurrence: AU)
  Receive Date: 20150519
  Receipt Date: 20150525
  Transmission Date: 20150821
  Serious: Yes (Hospitalization, Other)
  Sender: FDA-Public Use
  Company Number: AU-SUN PHARMACEUTICAL INDUSTRIES LTD-2015R1-97421

PATIENT
  Age: 51 Year
  Sex: Female

DRUGS (5)
  1. RIZATRIPTAN [Suspect]
     Active Substance: RIZATRIPTAN
     Indication: THUNDERCLAP HEADACHE
     Dosage: 10 MG, TID
     Route: 065
  2. TRAMADOL [Concomitant]
     Active Substance: TRAMADOL
     Indication: VOMITING
     Dosage: UNK
     Route: 065
  3. RIZATRIPTAN [Suspect]
     Active Substance: RIZATRIPTAN
     Indication: VOMITING
  4. TRAMADOL [Concomitant]
     Active Substance: TRAMADOL
     Indication: THUNDERCLAP HEADACHE
  5. INDOMETHACIN. [Suspect]
     Active Substance: INDOMETHACIN
     Indication: PAIN
     Route: 065

REACTIONS (3)
  - Reversible cerebral vasoconstriction syndrome [Recovered/Resolved]
  - Fibromuscular dysplasia [Recovered/Resolved]
  - Subarachnoid haemorrhage [Recovered/Resolved]
